FAERS Safety Report 5496752-2 (Version None)
Quarter: 2007Q4

REPORT INFORMATION
  Report Type: 
  Country: None (occurrence: None)
  Receive Date: 20071025
  Receipt Date: 20070809
  Transmission Date: 20080405
  Serious: No
  Sender: FDA-Public Use
  Company Number: A0669233A

PATIENT
  Age: 11 Year
  Sex: Female

DRUGS (4)
  1. ADVAIR DISKUS 100/50 [Suspect]
     Indication: ASTHMA
     Dosage: 1PUFF PER DAY
     Route: 055
     Dates: start: 20020101, end: 20020101
  2. FLOVENT [Suspect]
     Indication: ASTHMA
     Dosage: 1PUFF PER DAY
     Route: 055
     Dates: start: 20020101
  3. ALBUTEROL [Concomitant]
  4. XOPENEX [Concomitant]

REACTIONS (7)
  - DRUG INEFFECTIVE [None]
  - FLUSHING [None]
  - PRURITUS [None]
  - RASH [None]
  - SWELLING FACE [None]
  - THROAT TIGHTNESS [None]
  - URTICARIA [None]
